FAERS Safety Report 5722183-3 (Version None)
Quarter: 2008Q2

REPORT INFORMATION
  Report Type: 
  Country: None (occurrence: None)
  Receive Date: 20080429
  Receipt Date: 20080417
  Transmission Date: 20081010
  Serious: Yes (Other)
  Sender: FDA-Public Use
  Company Number: AU-ELI_LILLY_AND_COMPANY-AU200804004980

PATIENT
  Sex: Female

DRUGS (1)
  1. FLUOXETINE [Suspect]
     Indication: MAJOR DEPRESSION
     Dosage: UNK, UNK
     Dates: end: 20080301

REACTIONS (3)
  - ABNORMAL SLEEP-RELATED EVENT [None]
  - SLEEP TALKING [None]
  - SOMNAMBULISM [None]
